FAERS Safety Report 13603016 (Version 2)
Quarter: 2018Q1

REPORT INFORMATION
  Report Type: Spontaneous
  Country: None (occurrence: DE)
  Receive Date: 20170601
  Receipt Date: 20180226
  Transmission Date: 20180508
  Serious: Yes (Life-Threatening)
  Sender: FDA-Public Use
  Company Number: DE-ALSI-2017-00151

PATIENT
  Sex: Male

DRUGS (1)
  1. MEDICAL OXYGEN [Suspect]
     Active Substance: OXYGEN
     Indication: OXYGEN THERAPY

REACTIONS (4)
  - Accidental underdose [Recovered/Resolved]
  - General physical health deterioration [Recovered/Resolved]
  - Product quality issue [Recovered/Resolved]
  - Hypoxia [Recovered/Resolved]
